FAERS Safety Report 8169742-9 (Version None)
Quarter: 2012Q1

REPORT INFORMATION
  Report Type: 
  Country: None (occurrence: None)
  Receive Date: 20120228
  Receipt Date: 20120217
  Transmission Date: 20120608
  Serious: Yes (Other)
  Sender: FDA-Public Use
  Company Number: FR-JNJFOC-20120206057

PATIENT
  Age: 28 Year
  Sex: Female
  Weight: 90 kg

DRUGS (8)
  1. REMICADE [Suspect]
     Indication: PRODUCT USED FOR UNKNOWN INDICATION
     Route: 042
     Dates: start: 20110726
  2. REMICADE [Suspect]
     Route: 042
     Dates: start: 20110213
  3. REMICADE [Suspect]
     Route: 042
     Dates: start: 20111219
  4. REMICADE [Suspect]
     Route: 042
     Dates: start: 20111017
  5. REMICADE [Suspect]
     Route: 042
     Dates: start: 20110530
  6. REMICADE [Suspect]
     Route: 042
     Dates: start: 20110407
  7. REMICADE [Suspect]
     Route: 042
     Dates: start: 20110307
  8. REMICADE [Suspect]
     Route: 042
     Dates: start: 20110829

REACTIONS (1)
  - LUPUS-LIKE SYNDROME [None]
